FAERS Safety Report 9416734 (Version 1)
Quarter: 2013Q3

REPORT INFORMATION
  Report Type: Spontaneous
  Country: JP (occurrence: JP)
  Receive Date: 20130724
  Receipt Date: 20130724
  Transmission Date: 20140515
  Serious: Yes (Other)
  Sender: FDA-Public Use
  Company Number: JP-TEVA-419670ISR

PATIENT
  Age: 19 Year
  Sex: Male

DRUGS (4)
  1. PREDNISOLONE [Suspect]
     Indication: PYODERMA GANGRENOSUM
     Dosage: .6 MG/KG DAILY;
     Route: 042
  2. ASPIRIN [Concomitant]
  3. GANCICLOVIR [Concomitant]
  4. TOPICAL CORTICOSTEROID OINTMENT [Concomitant]
     Route: 061

REACTIONS (7)
  - Hypovolaemic shock [Unknown]
  - Colitis ulcerative [Recovering/Resolving]
  - Peritonitis [Unknown]
  - Cytomegalovirus infection [Recovering/Resolving]
  - Melaena [Unknown]
  - Pneumomediastinum [Unknown]
  - Subcutaneous emphysema [Unknown]
